FAERS Safety Report 8173341-2 (Version None)
Quarter: 2012Q1

REPORT INFORMATION
  Report Type: 
  Country: None (occurrence: None)
  Receive Date: 20120229
  Receipt Date: 20120223
  Transmission Date: 20120608
  Serious: Yes (Hospitalization)
  Sender: FDA-Public Use
  Company Number: US-MEDIMMUNE-MEDI-0014697

PATIENT
  Sex: Female

DRUGS (2)
  1. SYNAGIS [Suspect]
     Dates: start: 20111206, end: 20111229
  2. SYNAGIS [Suspect]
     Dates: start: 20120220, end: 20120220

REACTIONS (5)
  - RESPIRATORY SYNCYTIAL VIRUS INFECTION [None]
  - DYSPNOEA [None]
  - DEHYDRATION [None]
  - PYREXIA [None]
  - VOMITING [None]
